FAERS Safety Report 8789627 (Version 1)
Quarter: 2012Q4

REPORT INFORMATION
  Report Type: 
  Country: DK (occurrence: None)
  Receive Date: 20120906
  Receipt Date: 20120906
  Transmission Date: 20130627
  Serious: Yes (Hospitalization)
  Sender: FDA-Public Use
  Company Number: 2012/132

PATIENT
  Age: 3 Year
  Sex: Female
  Weight: 15 kg

DRUGS (1)
  1. VALPROATE [Suspect]
     Indication: EPILEPSY
     Route: 048

REACTIONS (4)
  - Blood lactic acid increased [None]
  - Ammonia increased [None]
  - Accidental overdose [None]
  - Heart rate increased [None]
